FAERS Safety Report 9922526 (Version 1)
Quarter: 2014Q1

REPORT INFORMATION
  Report Type: Spontaneous
  Country: US (occurrence: US)
  Receive Date: 20140225
  Receipt Date: 20140225
  Transmission Date: 20141002
  Serious: No
  Sender: FDA-Public Use
  Company Number: US-ABBVIE-13P-163-1056427-00

PATIENT
  Sex: Male
  Weight: 97.61 kg

DRUGS (1)
  1. ANDROGEL [Suspect]
     Indication: BLOOD TESTOSTERONE DECREASED
     Dosage: 5 PUMPS
     Dates: start: 2010, end: 2011

REACTIONS (1)
  - Blood testosterone abnormal [Unknown]
